FAERS Safety Report 5636866-7 (Version None)
Quarter: 2008Q1

REPORT INFORMATION
  Report Type: 
  Country: None (occurrence: None)
  Receive Date: 20080225
  Receipt Date: 20080219
  Transmission Date: 20080703
  Serious: Yes (Death, Hospitalization)
  Sender: FDA-Public Use
  Company Number: SE-ELI_LILLY_AND_COMPANY-SE200801004164

PATIENT
  Age: 47 Year
  Sex: Male

DRUGS (7)
  1. OLANZAPINE [Suspect]
     Indication: SCHIZOAFFECTIVE DISORDER
     Dates: start: 20000101
  2. OLANZAPINE [Suspect]
     Dosage: 10 MG, UNK
     Dates: end: 20060101
  3. OLANZAPINE [Suspect]
     Dosage: 5 MG, UNK
     Dates: start: 20060101, end: 20080101
  4. OLANZAPINE [Suspect]
     Dosage: 20 MG, UNK
     Dates: start: 20080101
  5. CIPRAMIL [Concomitant]
     Dosage: 20 MG, UNK
  6. DIAZEPAM [Concomitant]
     Dosage: 50 MG, UNK
  7. ANTIHYPERTENSIVES [Concomitant]
     Indication: BLOOD PRESSURE
     Dosage: 50 MG, UNK

REACTIONS (3)
  - PSYCHOTIC DISORDER [None]
  - PULMONARY EMBOLISM [None]
  - SUICIDAL IDEATION [None]
